FAERS Safety Report 9255475 (Version 1)
Quarter: 2013Q2

REPORT INFORMATION
  Report Type: Spontaneous
  Country: US (occurrence: None)
  Receive Date: 20130423
  Receipt Date: 20130423
  Transmission Date: 20140414
  Serious: Yes (Other)
  Sender: FDA-Public Use
  Company Number: None

PATIENT
  Age: 52 Year
  Sex: Female
  Weight: 109.77 kg

DRUGS (2)
  1. CYMBALTA [Suspect]
     Indication: FIBROMYALGIA
     Dosage: ONCE   ONCE PER DAY PO?APPX. AUG.2009-FEB2010
     Route: 048
     Dates: start: 200908, end: 201002
  2. CYMBALTA [Suspect]
     Indication: VASCULITIS
     Dosage: ONCE   ONCE PER DAY PO?APPX. AUG.2009-FEB2010
     Route: 048
     Dates: start: 200908, end: 201002

REACTIONS (2)
  - Drug withdrawal syndrome [None]
  - Paraesthesia [None]
